FAERS Safety Report 6142237-X (Version None)
Quarter: 2009Q2

REPORT INFORMATION
  Report Type: 
  Country: None (occurrence: None)
  Receive Date: 20090403
  Receipt Date: 20071121
  Transmission Date: 20091009
  Serious: Yes (Death, Hospitalization, Other)
  Sender: FDA-Public Use
  Company Number: US-ASTRAZENECA-2006UW21564

PATIENT
  Age: 28274 Day
  Sex: Male
  Weight: 86.3 kg

DRUGS (43)
  1. SEROQUEL [Suspect]
     Indication: HALLUCINATION
     Route: 048
     Dates: start: 20031101, end: 20040801
  2. SEROQUEL [Suspect]
     Indication: DEPRESSION
     Route: 048
     Dates: start: 20031101, end: 20040801
  3. SEROQUEL [Suspect]
     Indication: PSYCHOTIC DISORDER
     Route: 048
     Dates: start: 20031101, end: 20040801
  4. SEROQUEL [Suspect]
     Indication: INSOMNIA
     Route: 048
     Dates: start: 20031101, end: 20040801
  5. SEROQUEL [Suspect]
     Route: 048
     Dates: start: 20050401, end: 20050701
  6. SEROQUEL [Suspect]
     Route: 048
     Dates: start: 20050401, end: 20050701
  7. SEROQUEL [Suspect]
     Route: 048
     Dates: start: 20050401, end: 20050701
  8. SEROQUEL [Suspect]
     Route: 048
     Dates: start: 20050401, end: 20050701
  9. ABILIFY [Concomitant]
     Dates: start: 20040201, end: 20040501
  10. RISPERDAL [Concomitant]
     Dates: start: 20050401, end: 20050501
  11. EXPELAN [Concomitant]
     Dates: start: 20031101, end: 20040801
  12. MUCOMYST [Concomitant]
  13. ASPIRIN [Concomitant]
  14. TENORMIN [Concomitant]
  15. LEXAPRO [Concomitant]
  16. PROSCAR [Concomitant]
  17. LASIX [Concomitant]
  18. KLOR-CON [Concomitant]
  19. ZOCOR [Concomitant]
  20. TYLENOL [Concomitant]
  21. PROVENTIL [Concomitant]
  22. XANAX [Concomitant]
  23. ATROPINE SULPHATE [Concomitant]
  24. COLACE [Concomitant]
  25. NITROSTAT [Concomitant]
  26. RESTORIL [Concomitant]
  27. ATIVAN [Concomitant]
  28. HUMULIN R [Concomitant]
  29. MIRTAZAPINE [Concomitant]
  30. ATROVENT [Concomitant]
  31. KAON [Concomitant]
  32. ZITHROMAX [Concomitant]
  33. TORADOL [Concomitant]
  34. VICODIN [Concomitant]
  35. XOPENEX [Concomitant]
  36. LOVENOX [Concomitant]
  37. NEBCIN [Concomitant]
  38. INVANZ [Concomitant]
  39. ZEMURON [Concomitant]
  40. LOPRESSOR [Concomitant]
  41. MIDAZOLAM HCL [Concomitant]
  42. SUBLIMAZE PRESERVATIVE FREE [Concomitant]
  43. MORPHINE [Concomitant]

REACTIONS (16)
  - AGITATION [None]
  - ANHEDONIA [None]
  - ANXIETY [None]
  - CARDIO-RESPIRATORY ARREST [None]
  - CHEST PAIN [None]
  - CORONARY ARTERY DISEASE [None]
  - DEPRESSED MOOD [None]
  - DIABETES MELLITUS [None]
  - EYELID PTOSIS [None]
  - GAIT DISTURBANCE [None]
  - MAJOR DEPRESSION [None]
  - METABOLIC ENCEPHALOPATHY [None]
  - PARANOIA [None]
  - PARKINSONIAN REST TREMOR [None]
  - PSYCHOTIC DISORDER [None]
  - SOMNOLENCE [None]
